FAERS Safety Report 20832033 (Version 1)
Quarter: 2022Q2

REPORT INFORMATION
  Report Type: 
  Country: None (occurrence: None)
  Receive Date: 20220516
  Receipt Date: 20220516
  Transmission Date: 20220720
  Serious: No
  Sender: FDA-Public Use
  Company Number: US-ROCHE-3089771

PATIENT

DRUGS (8)
  1. OCREVUS [Suspect]
     Active Substance: OCRELIZUMAB
     Dosage: ONGOING: NO
     Dates: start: 201806, end: 20220122
  2. ADDERALL [Concomitant]
     Active Substance: AMPHETAMINE ASPARTATE\AMPHETAMINE SULFATE\DEXTROAMPHETAMINE SACCHARATE\DEXTROAMPHETAMINE SULFATE
  3. BACLOFEN [Concomitant]
     Active Substance: BACLOFEN
  4. REMERON [Concomitant]
     Active Substance: MIRTAZAPINE
  5. GABAPENTIN [Concomitant]
     Active Substance: GABAPENTIN
  6. REBIF [Concomitant]
     Active Substance: INTERFERON BETA-1A
  7. TECFIDERA [Concomitant]
     Active Substance: DIMETHYL FUMARATE
  8. TYSABRI [Concomitant]
     Active Substance: NATALIZUMAB

REACTIONS (1)
  - COVID-19 [None]
